FAERS Safety Report 26035325 (Version 2)
Quarter: 2025Q4

REPORT INFORMATION
  Report Type: Spontaneous
  Country: BR (occurrence: BR)
  Receive Date: 20251112
  Receipt Date: 20251121
  Transmission Date: 20260118
  Serious: Yes (Death, Hospitalization, Other)
  Sender: BRACCO
  Company Number: BR-BRACCO-2025BR07852

PATIENT
  Age: 64 Year
  Sex: Male

DRUGS (5)
  1. PROHANCE [Suspect]
     Active Substance: GADOTERIDOL
     Indication: Magnetic resonance imaging head
     Dosage: 13 ML, SINGLE
     Route: 042
     Dates: start: 20251009, end: 20251009
  2. ASPIRIN [Concomitant]
     Active Substance: ASPIRIN
  3. ATORVASTATIN [Concomitant]
     Active Substance: ATORVASTATIN
  4. ENALAPRIL [Concomitant]
     Active Substance: ENALAPRIL
  5. HYDROCHLOROTHIAZIDE [Concomitant]
     Active Substance: HYDROCHLOROTHIAZIDE

REACTIONS (5)
  - Cardio-respiratory arrest [Fatal]
  - Hemiparesis [Unknown]
  - Confusional state [Unknown]
  - Posture abnormal [Unknown]
  - Aphasia [Unknown]

NARRATIVE: CASE EVENT DATE: 20251009
